FAERS Safety Report 8291393-6 (Version None)
Quarter: 2012Q2

REPORT INFORMATION
  Report Type: 
  Country: None (occurrence: None)
  Receive Date: 20120417
  Receipt Date: 20120411
  Transmission Date: 20120825
  Serious: Yes (Hospitalization)
  Sender: FDA-Public Use
  Company Number: JP-GLAXOSMITHKLINE-B0780761A

PATIENT
  Sex: Male

DRUGS (4)
  1. LENDORMIN [Concomitant]
     Dosage: .25MG PER DAY
     Route: 048
     Dates: start: 20120118
  2. ALPRAZOLAM [Concomitant]
     Dosage: 3IUAX PER DAY
     Route: 048
     Dates: start: 20120118
  3. LAMICTAL [Suspect]
     Indication: BIPOLAR DISORDER
     Dosage: 4IUAX PER DAY
     Route: 048
     Dates: start: 20120119, end: 20120130
  4. DEPAKENE [Concomitant]
     Dosage: 2IUAX PER DAY
     Route: 048
     Dates: start: 20120118

REACTIONS (10)
  - BLOOD LACTATE DEHYDROGENASE INCREASED [None]
  - HEPATIC FUNCTION ABNORMAL [None]
  - DRUG ERUPTION [None]
  - ALANINE AMINOTRANSFERASE INCREASED [None]
  - PERIVASCULAR DERMATITIS [None]
  - GAMMA-GLUTAMYLTRANSFERASE INCREASED [None]
  - LYMPHOCYTE MORPHOLOGY ABNORMAL [None]
  - WHITE BLOOD CELL COUNT INCREASED [None]
  - ASPARTATE AMINOTRANSFERASE INCREASED [None]
  - EOSINOPHIL COUNT INCREASED [None]
